FAERS Safety Report 8882627 (Version 1)
Quarter: 2012Q4

REPORT INFORMATION
  Report Type: 
  Country: US (occurrence: US)
  Receive Date: 20121105
  Receipt Date: 20121105
  Transmission Date: 20130627
  Serious: No
  Sender: FDA-Public Use
  Company Number: US-009507513-1210USA012088

PATIENT
  Sex: Female

DRUGS (3)
  1. VICTRELIS [Suspect]
     Indication: HEPATITIS C
     Dosage: 800 mg, tid
     Route: 048
     Dates: start: 201205
  2. PEGINTRON [Suspect]
     Dosage: UNK
     Dates: start: 201205
  3. REBETOL [Suspect]
     Dosage: UNK
     Route: 048
     Dates: start: 201205

REACTIONS (7)
  - Malaise [Unknown]
  - Influenza like illness [Unknown]
  - Fatigue [Unknown]
  - Alopecia [Unknown]
  - Neuropathy peripheral [Unknown]
  - Rash [Unknown]
  - Skin disorder [Unknown]
